FAERS Safety Report 8424423-9 (Version None)
Quarter: 2012Q2

REPORT INFORMATION
  Report Type: 
  Country: None (occurrence: None)
  Receive Date: 20120608
  Receipt Date: 20110727
  Transmission Date: 20120825
  Serious: No
  Sender: FDA-Public Use
  Company Number: US-ASTRAZENECA-2011SE45037

PATIENT
  Age: 63 Year
  Sex: Female
  Weight: 45.4 kg

DRUGS (3)
  1. COUMADIN [Concomitant]
  2. ALBUTEROL [Concomitant]
  3. PULMICORT [Suspect]
     Route: 055

REACTIONS (3)
  - THERAPEUTIC RESPONSE UNEXPECTED [None]
  - RASH [None]
  - OFF LABEL USE [None]
